FAERS Safety Report 9455151 (Version 4)
Quarter: 2013Q4

REPORT INFORMATION
  Report Type: Spontaneous
  Country: FR (occurrence: FR)
  Receive Date: 20130813
  Receipt Date: 20131210
  Transmission Date: 20140711
  Serious: Yes (Hospitalization)
  Sender: FDA-Public Use
  Company Number: FR-ASTRAZENECA-2013SE61510

PATIENT
  Age: 29308 Day
  Sex: Male

DRUGS (15)
  1. INEXIUM [Suspect]
     Indication: GASTROOESOPHAGEAL REFLUX DISEASE
     Route: 048
     Dates: start: 20130506, end: 20130524
  2. TAZOCILLINE [Suspect]
     Indication: EAR INFECTION
     Route: 042
     Dates: start: 20130515, end: 20130619
  3. CIFLOX [Suspect]
     Indication: EAR INFECTION
     Route: 048
     Dates: start: 20130515, end: 20130524
  4. KARDEGIC [Suspect]
     Indication: MYOCARDIAL INFARCTION
     Route: 048
  5. TEMERIT [Suspect]
     Indication: HYPERTENSION
     Route: 048
     Dates: start: 2010
  6. TAHOR [Suspect]
     Route: 048
  7. OMACOR [Suspect]
     Indication: MYOCARDIAL INFARCTION
     Route: 048
  8. OFLOCET [Suspect]
     Indication: EAR INFECTION
     Route: 001
     Dates: start: 20130524, end: 20130612
  9. PANTOPRAZOLE [Suspect]
     Indication: EAR INFECTION
     Route: 048
     Dates: start: 20130524
  10. AUGMENTIN [Suspect]
     Route: 048
     Dates: start: 20130417, end: 20130527
  11. DIFFU K [Concomitant]
     Route: 048
  12. TRAMADOL [Concomitant]
     Route: 048
  13. TRAMADOL [Concomitant]
     Dosage: 100 MG QD, SR, IF REQUIRED
     Route: 048
  14. SOLUPRED [Concomitant]
     Dates: start: 20130417, end: 20130421
  15. POLYDEXA [Concomitant]
     Dates: start: 20130417

REACTIONS (4)
  - Drug reaction with eosinophilia and systemic symptoms [Unknown]
  - Renal failure acute [Unknown]
  - Hepatocellular injury [Unknown]
  - Hepatic failure [Unknown]
